FAERS Safety Report 24141514 (Version 1)
Quarter: 2024Q3

REPORT INFORMATION
  Report Type: Spontaneous
  Country: RO (occurrence: RO)
  Receive Date: 20240726
  Receipt Date: 20240726
  Transmission Date: 20241017
  Serious: Yes (Death, Hospitalization, Other)
  Sender: RANBAXY
  Company Number: RO-EMA-DD-20240502-7482641-130822

PATIENT
  Age: 38 Year
  Sex: Female

DRUGS (2)
  1. ACETAMINOPHEN [Suspect]
     Active Substance: ACETAMINOPHEN
     Indication: Muscle spasms
     Dosage: UNK
     Route: 065
  2. DROTAVERINE HYDROCHLORIDE [Suspect]
     Active Substance: DROTAVERINE HYDROCHLORIDE
     Indication: Muscle spasms
     Dosage: UNK
     Route: 065

REACTIONS (7)
  - Cardio-respiratory arrest [Fatal]
  - Sepsis [Fatal]
  - Abortion spontaneous [Unknown]
  - Cholecystitis [Unknown]
  - Abdominal pain [Unknown]
  - Exposure during pregnancy [Unknown]
  - Chills [Unknown]

NARRATIVE: CASE EVENT DATE: 20240101
